FAERS Safety Report 7328182-2 (Version None)
Quarter: 2011Q1

REPORT INFORMATION
  Report Type: 
  Country: None (occurrence: None)
  Receive Date: 20110303
  Receipt Date: 20110225
  Transmission Date: 20110831
  Serious: Yes (Hospitalization)
  Sender: FDA-Public Use
  Company Number: PHHY2011US12566

PATIENT
  Age: 54 Year
  Sex: Male

DRUGS (1)
  1. TOBI [Suspect]
     Indication: CYSTIC FIBROSIS
     Dosage: 300 MG, TWICE A DAY FOR 28 DAYS EVERY OTHER
     Dates: start: 20110208

REACTIONS (2)
  - FUNGAL INFECTION [None]
  - STAPHYLOCOCCAL INFECTION [None]
